FAERS Safety Report 10210920 (Version 1)
Quarter: 2014Q2

REPORT INFORMATION
  Report Type: Spontaneous
  Country: US (occurrence: None)
  Receive Date: 20140530
  Receipt Date: 20140530
  Transmission Date: 20141212
  Serious: Yes (Disabling, Other)
  Sender: FDA-Public Use
  Company Number: None

PATIENT
  Age: 51 Year
  Sex: Female
  Weight: 56.7 kg

DRUGS (11)
  1. KENALOG [Suspect]
  2. MORPHINE SULFATE [Concomitant]
  3. CLONAZEPAM [Concomitant]
  4. CARISOPRODOL [Concomitant]
  5. GABAPENTIN [Concomitant]
  6. NORCO [Concomitant]
  7. DILAUDID [Concomitant]
  8. TOPAMAX [Concomitant]
  9. MOBIC [Concomitant]
  10. POTASSIUM [Concomitant]
  11. MAGNESIUM OXIDE [Concomitant]

REACTIONS (28)
  - Paraesthesia [None]
  - Injection site pain [None]
  - Constipation [None]
  - Incontinence [None]
  - Female sexual dysfunction [None]
  - Genital hypoaesthesia [None]
  - Dry eye [None]
  - Vision blurred [None]
  - Memory impairment [None]
  - Pain [None]
  - Quality of life decreased [None]
  - Paralysis [None]
  - Headache [None]
  - Neuralgia [None]
  - Dyskinesia [None]
  - Muscle twitching [None]
  - Burning sensation [None]
  - Pain in extremity [None]
  - Paraesthesia [None]
  - Hypoaesthesia [None]
  - Sensory disturbance [None]
  - Muscle spasms [None]
  - Hypoaesthesia [None]
  - Insomnia [None]
  - Functional gastrointestinal disorder [None]
  - Bladder dysfunction [None]
  - Walking aid user [None]
  - Wheelchair user [None]
